FAERS Safety Report 12243109 (Version 1)
Quarter: 2016Q2

REPORT INFORMATION
  Report Type: Spontaneous
  Country: US (occurrence: US)
  Receive Date: 20160406
  Receipt Date: 20160406
  Transmission Date: 20160815
  Serious: No
  Sender: FDA-Public Use
  Company Number: US-SA-2015SA091827

PATIENT
  Age: 81 Year
  Sex: Female

DRUGS (1)
  1. ALLEGRA-D [Suspect]
     Active Substance: FEXOFENADINE\PSEUDOEPHEDRINE
     Indication: SINUS CONGESTION
     Dosage: USED THE PRODUCT FOR 6 DAYS.?DOSE AND DAILY DOSE: 180/240 MG
     Route: 048
     Dates: end: 20150622

REACTIONS (8)
  - Eye irritation [Recovering/Resolving]
  - Psychomotor hyperactivity [Recovering/Resolving]
  - Malaise [Recovering/Resolving]
  - Dry eye [Recovering/Resolving]
  - Insomnia [Recovering/Resolving]
  - Headache [Recovering/Resolving]
  - Eye pain [Recovering/Resolving]
  - Vitreous floaters [Recovering/Resolving]
